FAERS Safety Report 21292655 (Version 1)
Quarter: 2022Q3

REPORT INFORMATION
  Report Type: Spontaneous
  Country: US (occurrence: US)
  Receive Date: 20220905
  Receipt Date: 20220905
  Transmission Date: 20221026
  Serious: No
  Sender: FDA-Public Use
  Company Number: US-BRISTOL-MYERS SQUIBB COMPANY-2022-099458

PATIENT
  Age: 77 Year
  Sex: Male
  Weight: 123.83 kg

DRUGS (1)
  1. REVLIMID [Suspect]
     Active Substance: LENALIDOMIDE
     Indication: Plasma cell myeloma
     Dosage: FREQ: DAILY FOR 21 DAYS
     Route: 048
     Dates: start: 201912

REACTIONS (1)
  - Constipation [Not Recovered/Not Resolved]
